FAERS Safety Report 8836033 (Version 1)
Quarter: 2012Q4

REPORT INFORMATION
  Report Type: 
  Country: US (occurrence: US)
  Receive Date: 20121011
  Receipt Date: 20121011
  Transmission Date: 20130627
  Serious: No
  Sender: FDA-Public Use
  Company Number: US-009507513-1210USA001265

PATIENT
  Sex: Male

DRUGS (1)
  1. AZASITE [Suspect]
     Indication: HORDEOLUM
     Dosage: 2 DF, qd
     Route: 047
     Dates: start: 20120925

REACTIONS (5)
  - Drug dose omission [Unknown]
  - Product packaging quantity issue [Unknown]
  - Intentional drug misuse [Unknown]
  - No adverse event [Unknown]
  - Inappropriate schedule of drug administration [Unknown]
